FAERS Safety Report 9639356 (Version 1)
Quarter: 2013Q4

REPORT INFORMATION
  Report Type: Spontaneous
  Country: FR (occurrence: None)
  Receive Date: 20131021
  Receipt Date: 20131021
  Transmission Date: 20140711
  Serious: Yes (Hospitalization)
  Sender: FDA-Public Use
  Company Number: SYM-2013-11660

PATIENT
  Age: 84 Year
  Sex: Male

DRUGS (3)
  1. FLAGYL [Suspect]
     Indication: PNEUMONIA
     Route: 048
     Dates: start: 20120726
  2. PREVISCAN (FLUINDIONE) (FLUINDIONE) [Suspect]
     Indication: ATRIAL FIBRILLATION
     Dosage: 0.25 DOSAGE FORMS, DAILY, ORAL
     Route: 048
     Dates: end: 20120728
  3. ROCEPHINE [Suspect]
     Indication: PNEUMONIA
     Route: 048
     Dates: start: 20120725

REACTIONS (2)
  - International normalised ratio increased [None]
  - Drug interaction [None]
